FAERS Safety Report 5087316-3 (Version None)
Quarter: 2006Q3

REPORT INFORMATION
  Report Type: 
  Country: None (occurrence: None)
  Receive Date: 20060824
  Receipt Date: 20060822
  Transmission Date: 20061208
  Serious: Yes (Life-Threatening, Other)
  Sender: FDA-Public Use
  Company Number: PHFR2006GB02621

PATIENT
  Sex: Male
  Weight: 64.8 kg

DRUGS (1)
  1. TERBINAFINE [Suspect]
     Indication: NAIL TINEA
     Route: 048
     Dates: start: 20060214, end: 20060808

REACTIONS (1)
  - SYNCOPE [None]
